FAERS Safety Report 24727858 (Version 1)
Quarter: 2024Q4

REPORT INFORMATION
  Report Type: Spontaneous
  Country: US (occurrence: None)
  Receive Date: 20241212
  Receipt Date: 20241212
  Transmission Date: 20250114
  Serious: Yes (Hospitalization)
  Sender: Public
  Company Number: None

PATIENT
  Age: 77 Year
  Sex: Male
  Weight: 72 kg

DRUGS (1)
  1. VALACYCLOVIR HYDROCHLORIDE [Suspect]
     Active Substance: VALACYCLOVIR HYDROCHLORIDE
     Indication: Herpes zoster
     Dosage: FREQUENCY : DAILY;?
     Route: 048
     Dates: start: 20230523, end: 20240327

REACTIONS (5)
  - Confusional state [None]
  - Myoclonus [None]
  - Dysarthria [None]
  - Tremor [None]
  - Diplopia [None]

NARRATIVE: CASE EVENT DATE: 20240327
